FAERS Safety Report 16320607 (Version 1)
Quarter: 2019Q2

REPORT INFORMATION
  Report Type: Spontaneous
  Country: CN (occurrence: CN)
  Receive Date: 20190516
  Receipt Date: 20190516
  Transmission Date: 20190711
  Serious: Yes (Hospitalization)
  Sender: FDA-Public Use
  Company Number: CN-PFIZER INC-2019205474

PATIENT
  Age: 44 Year
  Sex: Male
  Weight: 76 kg

DRUGS (8)
  1. SODIUM CHLORIDE. [Concomitant]
     Active Substance: SODIUM CHLORIDE
     Indication: VEHICLE SOLUTION USE
     Dosage: 100 ML, 1X/DAY
     Route: 041
     Dates: start: 20190404, end: 20190404
  2. ENDOXAN [CYCLOPHOSPHAMIDE] [Suspect]
     Active Substance: CYCLOPHOSPHAMIDE
     Indication: THERAPEUTIC PROCEDURE
     Dosage: 1.3 G, 1X/DAY
     Route: 041
     Dates: start: 20190404, end: 20190404
  3. MABTHERA [Suspect]
     Active Substance: RITUXIMAB
     Indication: THERAPEUTIC PROCEDURE
     Dosage: 0.7 G, 1X/DAY
     Route: 041
     Dates: start: 20190403, end: 20190403
  4. VINDESINE SULFATE [Suspect]
     Active Substance: VINDESINE SULFATE
     Indication: THERAPEUTIC PROCEDURE
     Dosage: 4 MG, 1X/DAY
     Route: 041
     Dates: start: 20190404, end: 20190404
  5. PREDNISONE ACETATE [Suspect]
     Active Substance: PREDNISONE ACETATE
     Indication: THERAPEUTIC PROCEDURE
     Dosage: 30 MG, 3X/DAY
     Route: 048
     Dates: start: 20190404, end: 20190408
  6. SODIUM CHLORIDE. [Concomitant]
     Active Substance: SODIUM CHLORIDE
     Indication: VEHICLE SOLUTION USE
     Dosage: 20 ML, 1X/DAY
     Route: 041
     Dates: start: 20190404, end: 20190404
  7. ETOPOSIDE. [Suspect]
     Active Substance: ETOPOSIDE
     Indication: THERAPEUTIC PROCEDURE
     Dosage: 0.18 MG, 1X/DAY
     Route: 041
     Dates: start: 20190404, end: 20190406
  8. PHARMORUBICIN [Suspect]
     Active Substance: EPIRUBICIN
     Indication: THERAPEUTIC PROCEDURE
     Dosage: 140 MG, 1X/DAY
     Route: 041
     Dates: start: 20190404, end: 20190404

REACTIONS (1)
  - Herpes zoster [Recovering/Resolving]

NARRATIVE: CASE EVENT DATE: 20190419
